FAERS Safety Report 9832849 (Version 3)
Quarter: 2014Q1

REPORT INFORMATION
  Report Type: Report from Study
  Country: JP (occurrence: JP)
  Receive Date: 20140121
  Receipt Date: 20140221
  Transmission Date: 20141002
  Serious: Yes (Death)
  Sender: FDA-Public Use
  Company Number: JP-CUBIST PHARMACEUTICAL, INC.-2014CBST000036

PATIENT
  Sex: 0

DRUGS (14)
  1. CUBICIN [Suspect]
     Indication: AORTIC ANEURYSM
     Dosage: 6 MG/KG, ONCE DAILY
     Route: 041
     Dates: start: 20130706, end: 20130719
  2. CUBICIN [Suspect]
     Indication: INFECTIVE ANEURYSM
  3. CUBICIN [Suspect]
     Indication: OFF LABEL USE
  4. VANCOMYCIN [Concomitant]
     Indication: AORTIC ANEURYSM
     Dosage: 2000 MG, QD
     Route: 041
     Dates: start: 20130628, end: 20130705
  5. VANCOMYCIN [Concomitant]
     Indication: INFECTIVE ANEURYSM
  6. CEFTRIAXONE [Concomitant]
     Indication: AORTIC ANEURYSM
     Dosage: 2 G, QD
     Route: 041
     Dates: start: 20130702, end: 20130705
  7. CEFTRIAXONE [Concomitant]
     Indication: INFECTIVE ANEURYSM
  8. MEROPENEM [Concomitant]
     Indication: AORTIC ANEURYSM
     Dosage: 1 G, TID
     Route: 051
     Dates: start: 20130706, end: 20130719
  9. MEROPENEM [Concomitant]
     Indication: INFECTIVE ANEURYSM
  10. FUNGUARD [Concomitant]
     Indication: AORTIC ANEURYSM
     Dosage: 50 MG, ONCE DAILY
     Route: 051
     Dates: start: 20130706, end: 20130710
  11. FUNGUARD [Concomitant]
     Indication: INFECTIVE ANEURYSM
  12. MORPHINE HCL [Concomitant]
     Indication: AORTIC ANEURYSM
     Dosage: 10 MG, ONCE DAILY
     Route: 051
     Dates: start: 20130715, end: 20130723
  13. MORPHINE HCL [Concomitant]
     Indication: INFECTIVE ANEURYSM
  14. MUCOSOLVAN [Concomitant]
     Indication: PRODUCT USED FOR UNKNOWN INDICATION
     Dosage: 15 MG, TID
     Route: 048
     Dates: start: 20130706, end: 20130716

REACTIONS (2)
  - Aortic aneurysm [Fatal]
  - Pain [Not Recovered/Not Resolved]
